FAERS Safety Report 6665752-9 (Version None)
Quarter: 2010Q2

REPORT INFORMATION
  Report Type: 
  Country: None (occurrence: None)
  Receive Date: 20100401
  Receipt Date: 20100111
  Transmission Date: 20101027
  Serious: No
  Sender: FDA-Public Use
  Company Number: DL2010-0014

PATIENT
  Age: 28 Year
  Sex: Female
  Weight: 61.2356 kg

DRUGS (7)
  1. MIFEPRISTONE (MIFEPREX) [Suspect]
     Indication: ABORTION INDUCED
     Dosage: 200 MG, ORAL
     Route: 048
     Dates: start: 20090814
  2. MISOPROSTOL [Suspect]
     Dosage: 800 MCG, BUCCAL, 8/15/2009 OR 8/16/2009
     Route: 002
     Dates: start: 20090815
  3. MISOPROSTOL [Suspect]
     Dosage: 800 MCG, BUCCAL, 8/15/2009 OR 8/16/2009
     Route: 002
     Dates: start: 20090816
  4. DOXYCYCLINE [Concomitant]
  5. RECLIPSEN [Concomitant]
  6. PHENERGAN HCL [Concomitant]
  7. TYLENOL W/ CODEINE NO. 3 [Concomitant]

REACTIONS (1)
  - ABORTION INCOMPLETE [None]
